FAERS Safety Report 8381786-0 (Version None)
Quarter: 2012Q2

REPORT INFORMATION
  Report Type: 
  Country: None (occurrence: None)
  Receive Date: 20120522
  Receipt Date: 20120522
  Transmission Date: 20120825
  Serious: Yes (Hospitalization)
  Sender: FDA-Public Use
  Company Number: None

PATIENT
  Sex: Female

DRUGS (3)
  1. RIBAVIRIN [Suspect]
     Indication: HEPATITIS C
     Dosage: 600 MG BID PO
     Route: 048
  2. INCIVEK [Concomitant]
  3. PEGASYS [Suspect]
     Indication: HEPATITIS C
     Dosage: 180 MCG Q WEEK SQ
     Route: 058

REACTIONS (3)
  - PNEUMONIA [None]
  - ANAEMIA [None]
  - CARDIAC FAILURE CONGESTIVE [None]
